FAERS Safety Report 5398583-0 (Version None)
Quarter: 2007Q3

REPORT INFORMATION
  Report Type: 
  Country: None (occurrence: None)
  Receive Date: 20070726
  Receipt Date: 20061019
  Transmission Date: 20080115
  Serious: No
  Sender: FDA-Public Use
  Company Number: US-AMGEN-KDL197705

PATIENT
  Sex: Female
  Weight: 77.2 kg

DRUGS (5)
  1. PROCRIT [Suspect]
     Indication: RENAL FAILURE CHRONIC
  2. LASIX [Concomitant]
  3. LISINOPRIL [Concomitant]
  4. DIOVAN [Concomitant]
  5. CLONIDINE [Concomitant]

REACTIONS (1)
  - MUSCLE SPASMS [None]
